FAERS Safety Report 5449502-X (Version None)
Quarter: 2007Q3

REPORT INFORMATION
  Report Type: 
  Country: None (occurrence: None)
  Receive Date: 20070907
  Receipt Date: 20070706
  Transmission Date: 20080115
  Serious: Yes (Other)
  Sender: FDA-Public Use
  Company Number: 001#2#2007-00464

PATIENT
  Age: 76 Year
  Sex: Male

DRUGS (8)
  1. NEUPRO [Suspect]
     Indication: PARKINSON'S DISEASE
     Dosage: 4 MG/24H (4 MG/24H 1 IN 1 DAY (S)) TRANSDERMAL
     Route: 062
     Dates: start: 20070614, end: 20070707
  2. FUROSEDMDE (FUROSEMIDE) [Concomitant]
  3. ACETYLSALICYLIC ACID SRT [Concomitant]
  4. CLOPIDOGREL [Concomitant]
  5. MEDIVITAN (ASCORBIC ACID, CYANOCOBALAMIN, FOLATE SODIUM, HYDROXYCOBALA [Concomitant]
  6. ATORVASTATIN (ATORVASTATIN CALCIJM) [Concomitant]
  7. XIPAMIDE (MINERAL OIL LIGHT, PARAFFIN, PETROLATUM, WOOL ALCOHOLS) [Concomitant]
  8. PROVAS-OHNE-DOSIS-FILMTABLETTEN (VALSARTAN) [Concomitant]

REACTIONS (4)
  - CARDIOVASCULAR DISORDER [None]
  - PAIN IN EXTREMITY [None]
  - SKIN CHAPPED [None]
  - SKIN ULCER [None]
